FAERS Safety Report 11422041 (Version 1)
Quarter: 2015Q3

REPORT INFORMATION
  Report Type: Spontaneous
  Country: FR (occurrence: FR)
  Receive Date: 20150827
  Receipt Date: 20150827
  Transmission Date: 20151125
  Serious: Yes (Hospitalization, Disabling)
  Sender: FDA-Public Use
  Company Number: FR-ROCHE-1624192

PATIENT
  Age: 66 Year
  Sex: Male

DRUGS (14)
  1. CELLCEPT [Suspect]
     Active Substance: MYCOPHENOLATE MOFETIL\MYCOPHENOLATE MOFETIL HYDROCHLORIDE
     Indication: PROPHYLAXIS AGAINST TRANSPLANT REJECTION
     Route: 065
     Dates: start: 2003, end: 2010
  2. CERTICAN [Suspect]
     Active Substance: EVEROLIMUS
     Indication: PROPHYLAXIS AGAINST TRANSPLANT REJECTION
     Dosage: 0.75 MG TWICE A DAY
     Route: 048
     Dates: start: 2010
  3. CERTICAN [Suspect]
     Active Substance: EVEROLIMUS
     Dosage: 0.5 MG IN MORNING AND 0.75 MG IN EVENING
     Route: 048
     Dates: start: 201212, end: 20150702
  4. JANUVIA [Concomitant]
     Active Substance: SITAGLIPTIN PHOSPHATE
     Route: 048
     Dates: start: 2008, end: 2015
  5. BIPRETERAX [Concomitant]
     Active Substance: INDAPAMIDE\PERINDOPRIL
     Indication: HYPERTENSION
     Route: 048
     Dates: start: 2014, end: 2015
  6. CARDENSIEL [Concomitant]
     Active Substance: BISOPROLOL FUMARATE
     Route: 048
     Dates: start: 2003, end: 2015
  7. EZETROL [Concomitant]
     Active Substance: EZETIMIBE
     Route: 048
     Dates: start: 2003, end: 2015
  8. TRIATEC (CODEINE PHOSPHATE/PARACETAMOL) [Concomitant]
     Indication: HYPERTENSION
     Route: 048
     Dates: start: 2013, end: 2015
  9. NOVONORM [Concomitant]
     Active Substance: REPAGLINIDE
     Route: 048
     Dates: start: 2012, end: 2015
  10. ELISOR [Concomitant]
     Active Substance: PRAVASTATIN SODIUM
     Route: 065
     Dates: start: 2003, end: 2015
  11. PREVISCAN (FRANCE) [Concomitant]
     Active Substance: FLUINDIONE
     Route: 048
     Dates: start: 200308, end: 2015
  12. EUPRESSYL [Concomitant]
     Active Substance: URAPIDIL
     Indication: HYPERTENSION
     Route: 048
     Dates: start: 2003, end: 2013
  13. METFORMIN [Concomitant]
     Active Substance: METFORMIN HYDROCHLORIDE
     Route: 065
     Dates: start: 2008, end: 2012
  14. NEORAL [Suspect]
     Active Substance: CYCLOSPORINE
     Indication: PROPHYLAXIS AGAINST TRANSPLANT REJECTION
     Route: 048
     Dates: start: 2003

REACTIONS (3)
  - Chronic kidney disease [Recovered/Resolved with Sequelae]
  - Nephrogenic anaemia [Recovered/Resolved]
  - Nephropathy [Recovered/Resolved with Sequelae]

NARRATIVE: CASE EVENT DATE: 2010
